FAERS Safety Report 10263096 (Version 2)
Quarter: 2014Q2

REPORT INFORMATION
  Report Type: Report from Study
  Country: US (occurrence: US)
  Receive Date: 20140626
  Receipt Date: 20140626
  Transmission Date: 20141212
  Serious: Yes (Other)
  Sender: FDA-Public Use
  Company Number: US-MYLANLABS-2014S1001118

PATIENT
  Age: 22 Year
  Sex: Female

DRUGS (7)
  1. CLOZAPINE TABLETS [Suspect]
     Indication: SCHIZOPHRENIA
     Route: 048
     Dates: start: 20140110, end: 20140112
  2. CLOZAPINE TABLETS [Suspect]
     Indication: BIPOLAR DISORDER
     Route: 048
     Dates: start: 20140110, end: 20140112
  3. CLOZAPINE TABLETS [Suspect]
     Indication: SCHIZOPHRENIA
     Route: 048
     Dates: start: 20140112, end: 20140113
  4. CLOZAPINE TABLETS [Suspect]
     Indication: BIPOLAR DISORDER
     Route: 048
     Dates: start: 20140112, end: 20140113
  5. COGENTIN [Concomitant]
     Route: 048
  6. MULTIVITAMIN [Concomitant]
     Route: 048
  7. OLANZAPINE [Concomitant]
     Route: 048

REACTIONS (1)
  - Granulocytopenia [Not Recovered/Not Resolved]
